FAERS Safety Report 5752157-8 (Version None)
Quarter: 2008Q2

REPORT INFORMATION
  Report Type: 
  Country: None (occurrence: None)
  Receive Date: 20080529
  Receipt Date: 20080523
  Transmission Date: 20081010
  Serious: Yes (Other)
  Sender: FDA-Public Use
  Company Number: US-WYE-H04242508

PATIENT

DRUGS (1)
  1. ROBITUSSIN [Suspect]
     Dosage: UNKNOWN
     Route: 048

REACTIONS (1)
  - SEROTONIN SYNDROME [None]
